FAERS Safety Report 7994273-6 (Version None)
Quarter: 2011Q4

REPORT INFORMATION
  Report Type: 
  Country: None (occurrence: None)
  Receive Date: 20111220
  Receipt Date: 20111213
  Transmission Date: 20120403
  Serious: Yes (Other)
  Sender: FDA-Public Use
  Company Number: SE-JNJFOC-20111200647

PATIENT
  Sex: Male

DRUGS (4)
  1. FRAGMIN [Suspect]
     Indication: ILL-DEFINED DISORDER
     Dates: start: 20100913
  2. CYCLOKAPRON [Concomitant]
  3. OCTOSTIM [Concomitant]
  4. XARELTO [Suspect]
     Indication: KNEE OPERATION
     Route: 048
     Dates: start: 20100914

REACTIONS (3)
  - STAPHYLOCOCCAL INFECTION [None]
  - BLISTER [None]
  - HAEMATOMA [None]
